FAERS Safety Report 4885887-0 (Version None)
Quarter: 2006Q1

REPORT INFORMATION
  Report Type: 
  Country: None (occurrence: None)
  Receive Date: 20060117
  Receipt Date: 20051229
  Transmission Date: 20060701
  Serious: Yes (Hospitalization)
  Sender: FDA-Public Use
  Company Number: 220911

PATIENT
  Age: 67 Year
  Sex: Male

DRUGS (4)
  1. AVASTIN [Suspect]
     Indication: COLORECTAL CANCER
     Dosage: 450 MG, QD, INTRAVENOUS
     Route: 042
     Dates: start: 20050830
  2. CAPECITABINE (CAPECITABINE) [Suspect]
     Indication: COLORECTAL CANCER
     Dosage: 3600 MG, QD, ORAL
     Route: 048
     Dates: start: 20050830
  3. OXALIPLATIN (OXALIPLATIN) [Suspect]
     Indication: COLORECTAL CANCER
     Dosage: 230 MG, QD, INTRAVENOUS
     Route: 042
     Dates: start: 20050830
  4. CETUXIMAB (CETUXIMAB) [Suspect]
     Indication: COLORECTAL CANCER
     Dosage: 445 MG, QD, INTRAVENOUS
     Route: 042
     Dates: start: 20050830

REACTIONS (1)
  - GASTRIC ULCER [None]
